FAERS Safety Report 9339364 (Version 3)
Quarter: 2015Q2

REPORT INFORMATION
  Report Type: Spontaneous
  Country: US (occurrence: US)
  Receive Date: 20130610
  Receipt Date: 20150506
  Transmission Date: 20150821
  Serious: Yes (Hospitalization)
  Sender: FDA-Public Use
  Company Number: US-BAYER-2013-070863

PATIENT
  Age: 45 Year
  Sex: Female
  Weight: 56.69 kg

DRUGS (8)
  1. YASMIN [Suspect]
     Active Substance: DROSPIRENONE\ETHINYL ESTRADIOL
     Indication: CONTRACEPTION
     Dosage: UNK
     Dates: start: 201206, end: 201207
  2. ASACOL [Concomitant]
     Active Substance: MESALAMINE
     Indication: COLITIS ULCERATIVE
     Dosage: 1600 MG, BID
     Route: 048
     Dates: start: 20120825
  3. PREDNISONE. [Concomitant]
     Active Substance: PREDNISONE
     Indication: COLITIS ULCERATIVE
     Dosage: 10 MG DAILY, 20 MG WHEN HAS FLARE
     Route: 048
     Dates: start: 20120825
  4. ALDOSTERONE [Concomitant]
     Active Substance: ALDOSTERONE
     Dosage: UNK
     Dates: start: 2006
  5. ADVIL [IBUPROFEN] [Concomitant]
     Active Substance: IBUPROFEN
     Dosage: UNK
     Dates: start: 2005
  6. ASACOL [Concomitant]
     Active Substance: MESALAMINE
     Indication: COLITIS ULCERATIVE
     Dosage: UNK
     Dates: start: 2004
  7. MESALAMINE. [Concomitant]
     Active Substance: MESALAMINE
     Dosage: 1600 MG, BID
     Route: 048
  8. PREDNISONE. [Concomitant]
     Active Substance: PREDNISONE
     Indication: COLITIS ULCERATIVE
     Dosage: UNK
     Dates: start: 2002

REACTIONS (5)
  - Pulmonary embolism [None]
  - Lung consolidation [None]
  - Pulmonary infarction [None]
  - Injury [None]
  - Pain [None]

NARRATIVE: CASE EVENT DATE: 20120825
